FAERS Safety Report 13708826 (Version 1)
Quarter: 2017Q2

REPORT INFORMATION
  Report Type: Spontaneous
  Country: US (occurrence: US)
  Receive Date: 20170630
  Receipt Date: 20170630
  Transmission Date: 20170830
  Serious: Yes (Hospitalization, Other)
  Sender: FDA-Public Use
  Company Number: US-SAOL THERAPEUTICS-2017SAO01132

PATIENT
  Sex: Male

DRUGS (5)
  1. LIORESAL [Suspect]
     Active Substance: BACLOFEN
     Dosage: 55 ?G, \DAY
     Route: 037
  2. LIORESAL [Suspect]
     Active Substance: BACLOFEN
     Dosage: 550 ?G, \DAY
  3. LIORESAL [Suspect]
     Active Substance: BACLOFEN
     Indication: MUSCLE SPASTICITY
     Dosage: UNK
  4. LIORESAL [Suspect]
     Active Substance: BACLOFEN
     Indication: MUSCLE SPASTICITY
     Dosage: 250 ?G, \DAY
  5. LIORESAL [Suspect]
     Active Substance: BACLOFEN
     Dosage: UNK

REACTIONS (8)
  - Gait disturbance [None]
  - Automatic bladder [Recovered/Resolved]
  - Sarcoma metastatic [Unknown]
  - Pain [Recovered/Resolved]
  - Therapy non-responder [Recovered/Resolved]
  - Hypotonia [Recovered/Resolved]
  - Drug withdrawal syndrome [Recovered/Resolved]
  - Device occlusion [Recovered/Resolved]

NARRATIVE: CASE EVENT DATE: 2012
